FAERS Safety Report 4545989-5 (Version None)
Quarter: 2005Q1

REPORT INFORMATION
  Report Type: 
  Country: None (occurrence: None)
  Receive Date: 20050105
  Receipt Date: 20050105
  Transmission Date: 20050727
  Serious: Yes (Death)
  Sender: FDA-Public Use
  Company Number: None

PATIENT
  Age: 27 Year
  Sex: Male
  Weight: 92 kg

DRUGS (4)
  1. AVASTIN [Suspect]
     Indication: COLON CANCER METASTATIC
     Dosage: 477 MG    IV OVER 2 HRS.  INTRAVENOU
     Route: 042
     Dates: start: 20040707, end: 20040707
  2. FLUOROURACIL [Suspect]
     Indication: COLON CANCER METASTATIC
     Dosage: 1200 MG   IV OVER 22 HRS   INTRAVENOU
     Route: 042
     Dates: start: 20040707, end: 20040708
  3. OXALIPLATIN [Suspect]
     Dosage: 170 MG IV OVER 2 HRS
     Route: 042
     Dates: start: 20040707
  4. FLUOROURACIL [Suspect]
     Dosage: 800 MG IV BOLUS OVER 2 HRS.
     Route: 040
     Dates: start: 20040708

REACTIONS (11)
  - CARDIAC ARREST [None]
  - COMA [None]
  - CORONARY ARTERY ATHEROSCLEROSIS [None]
  - HEADACHE [None]
  - INTRACARDIAC THROMBUS [None]
  - METASTASES TO LIVER [None]
  - PLEURAL EFFUSION [None]
  - POST PROCEDURAL VOMITING [None]
  - PULMONARY EMBOLISM [None]
  - PULMONARY OEDEMA [None]
  - VENTRICULAR TACHYCARDIA [None]
